FAERS Safety Report 9032514 (Version 14)
Quarter: 2014Q3

REPORT INFORMATION
  Report Type: Report from Study
  Country: CA (occurrence: CA)
  Receive Date: 20130125
  Receipt Date: 20140905
  Transmission Date: 20150326
  Serious: Yes (Hospitalization, Other)
  Sender: FDA-Public Use
  Company Number: CA-ASTRAZENECA-2012SE45322

PATIENT
  Age: 51 Year
  Sex: Female
  Weight: 23.1 kg

DRUGS (55)
  1. CAPRELSA [Suspect]
     Active Substance: VANDETANIB
     Indication: MEDULLARY THYROID CANCER
     Route: 048
  2. CAPRELSA [Suspect]
     Active Substance: VANDETANIB
     Indication: MEDULLARY THYROID CANCER
     Route: 048
     Dates: start: 20130508
  3. CAPRELSA [Suspect]
     Active Substance: VANDETANIB
     Indication: MEDULLARY THYROID CANCER
     Route: 048
     Dates: start: 20130703
  4. CAPRELSA [Suspect]
     Active Substance: VANDETANIB
     Indication: MEDULLARY THYROID CANCER
     Route: 048
     Dates: start: 20140117, end: 20140414
  5. DEXAMETHASONE. [Concomitant]
     Active Substance: DEXAMETHASONE
  6. LOMOTIL [Concomitant]
     Active Substance: ATROPINE SULFATE\DIPHENOXYLATE HYDROCHLORIDE
     Dosage: 2.5MG/0.025MG PRN
  7. ESTRACE [Concomitant]
     Active Substance: ESTRADIOL
  8. CAPRELSA [Suspect]
     Active Substance: VANDETANIB
     Indication: MEDULLARY THYROID CANCER
     Route: 048
     Dates: start: 20120505, end: 20120702
  9. CAPRELSA [Suspect]
     Active Substance: VANDETANIB
     Indication: MEDULLARY THYROID CANCER
     Route: 048
     Dates: start: 20120505, end: 20121222
  10. CAPRELSA [Suspect]
     Active Substance: VANDETANIB
     Indication: MEDULLARY THYROID CANCER
     Route: 048
     Dates: start: 20130114, end: 20130119
  11. CAPRELSA [Suspect]
     Active Substance: VANDETANIB
     Indication: MEDULLARY THYROID CANCER
     Route: 048
  12. CAPRELSA [Suspect]
     Active Substance: VANDETANIB
     Indication: MEDULLARY THYROID CANCER
     Route: 048
     Dates: start: 20120505, end: 20140801
  13. IMODIUM [Concomitant]
     Active Substance: LOPERAMIDE HYDROCHLORIDE
  14. FLORINEF ACETATE [Concomitant]
     Active Substance: FLUDROCORTISONE ACETATE
     Dosage: 0.1MG ONCE A DAY 1 AND 1/2 TAB
  15. PAXIL [Concomitant]
     Active Substance: PAROXETINE HYDROCHLORIDE
  16. ZOMETA [Concomitant]
     Active Substance: ZOLEDRONIC ACID
  17. VITAMIN D [Concomitant]
     Active Substance: CHOLECALCIFEROL
  18. ESTRACE [Concomitant]
     Active Substance: ESTRADIOL
  19. CAPRELSA [Suspect]
     Active Substance: VANDETANIB
     Indication: MEDULLARY THYROID CANCER
     Route: 048
     Dates: start: 20120405, end: 20120629
  20. CAPRELSA [Suspect]
     Active Substance: VANDETANIB
     Indication: MEDULLARY THYROID CANCER
     Route: 048
     Dates: start: 20120505
  21. CAPRELSA [Suspect]
     Active Substance: VANDETANIB
     Indication: MEDULLARY THYROID CANCER
     Route: 048
     Dates: start: 20130104, end: 20130114
  22. TYLENOL COMPLETE [Concomitant]
     Dosage: PRN
  23. PREMARIN [Concomitant]
     Active Substance: ESTROGENS, CONJUGATED
  24. CORTEF [Concomitant]
     Active Substance: HYDROCORTISONE
     Dosage: 15 MG QAM AND 5 MG QPM
  25. ZOVIRAX [Concomitant]
     Active Substance: ACYCLOVIR
     Dosage: 50 MG/G, PRN
  26. TOBRADEX [Concomitant]
     Active Substance: DEXAMETHASONE\TOBRAMYCIN
  27. MAGNESIUM [Concomitant]
     Active Substance: MAGNESIUM
  28. CAPRELSA [Suspect]
     Active Substance: VANDETANIB
     Indication: MEDULLARY THYROID CANCER
     Route: 048
     Dates: start: 20120505
  29. CAPRELSA [Suspect]
     Active Substance: VANDETANIB
     Indication: MEDULLARY THYROID CANCER
     Route: 048
     Dates: start: 20130501
  30. CAPRELSA [Suspect]
     Active Substance: VANDETANIB
     Indication: MEDULLARY THYROID CANCER
     Route: 048
     Dates: end: 20130609
  31. DEXAMETHASONE. [Concomitant]
     Active Substance: DEXAMETHASONE
     Dates: end: 20130528
  32. CLONAZEPAM. [Concomitant]
     Active Substance: CLONAZEPAM
  33. PREMARIN [Concomitant]
     Active Substance: ESTROGENS, CONJUGATED
     Dates: end: 20130528
  34. MOTRIN IB [Concomitant]
     Active Substance: IBUPROFEN
     Dosage: 200MG GEL CAP Q6H PRN
  35. AMOXICILLIN. [Concomitant]
     Active Substance: AMOXICILLIN
     Dosage: TID
     Route: 048
  36. CAPRELSA [Suspect]
     Active Substance: VANDETANIB
     Indication: MEDULLARY THYROID CANCER
     Route: 048
     Dates: start: 20120505
  37. CAPRELSA [Suspect]
     Active Substance: VANDETANIB
     Indication: MEDULLARY THYROID CANCER
     Route: 048
     Dates: start: 20130221
  38. CAPRELSA [Suspect]
     Active Substance: VANDETANIB
     Indication: MEDULLARY THYROID CANCER
     Route: 048
     Dates: start: 20130810, end: 20130811
  39. DEXAMETHASONE. [Concomitant]
     Active Substance: DEXAMETHASONE
  40. CENTRUM SELECT [Concomitant]
     Dosage: 50 PLUS, 1 TAB OD
  41. PAROXETINE [Concomitant]
     Active Substance: PAROXETINE\PAROXETINE HYDROCHLORIDE
  42. CAPRELSA [Suspect]
     Active Substance: VANDETANIB
     Indication: MEDULLARY THYROID CANCER
     Route: 048
     Dates: end: 20130416
  43. CAPRELSA [Suspect]
     Active Substance: VANDETANIB
     Indication: MEDULLARY THYROID CANCER
     Route: 048
     Dates: start: 20140526
  44. CALCIUM [Concomitant]
     Active Substance: CALCIUM
  45. CETIRIZINE [Concomitant]
     Active Substance: CETIRIZINE HYDROCHLORIDE
     Dosage: 10 MG OD PRN
  46. SUDAFED [Concomitant]
     Active Substance: PSEUDOEPHEDRINE HYDROCHLORIDE
     Dosage: 1 OD PRN
  47. APO-MEDROXY [Concomitant]
  48. ADVIL X FORT [Concomitant]
     Dosage: 400 MG PRN
  49. CAPRELSA [Suspect]
     Active Substance: VANDETANIB
     Indication: MEDULLARY THYROID CANCER
     Route: 048
  50. CAPRELSA [Suspect]
     Active Substance: VANDETANIB
     Indication: MEDULLARY THYROID CANCER
     Route: 048
     Dates: end: 201308
  51. CAPRELSA [Suspect]
     Active Substance: VANDETANIB
     Indication: MEDULLARY THYROID CANCER
     Route: 048
     Dates: start: 20120505, end: 20140101
  52. SYNTHROID [Concomitant]
     Active Substance: LEVOTHYROXINE SODIUM
  53. OTRIVIN [Concomitant]
     Active Substance: XYLOMETAZOLINE
     Dosage: ONE SPRAY IN EACH NOSTRILS QHS
     Route: 045
  54. CORTEF [Concomitant]
     Active Substance: HYDROCORTISONE
     Dosage: 100 MG INJECTION PRN
  55. PROLIA [Concomitant]
     Active Substance: DENOSUMAB
     Indication: BONE PAIN
     Dosage: ONE INJECTION EVENRY SIX MONTHS, 60 MG

REACTIONS (40)
  - Oral infection [Unknown]
  - Abdominal distension [Recovered/Resolved]
  - Drug dose omission [Unknown]
  - Hot flush [Recovered/Resolved]
  - Hyperhidrosis [Not Recovered/Not Resolved]
  - Chills [Not Recovered/Not Resolved]
  - Gastroenteritis viral [Not Recovered/Not Resolved]
  - Malaise [Recovered/Resolved]
  - Onychoclasis [Unknown]
  - Alopecia [Not Recovered/Not Resolved]
  - Blood magnesium decreased [Unknown]
  - Activities of daily living impaired [Not Recovered/Not Resolved]
  - Eyelid oedema [Not Recovered/Not Resolved]
  - Red blood cell count decreased [Unknown]
  - Blood electrolytes abnormal [Unknown]
  - Trichorrhexis [Not Recovered/Not Resolved]
  - Vision blurred [Not Recovered/Not Resolved]
  - Rhinorrhoea [Not Recovered/Not Resolved]
  - Fatigue [Not Recovered/Not Resolved]
  - Cough [Recovering/Resolving]
  - Herpes dermatitis [Not Recovered/Not Resolved]
  - Paranasal sinus discomfort [Unknown]
  - Eye infection [Not Recovered/Not Resolved]
  - Pyrexia [Unknown]
  - Respiratory tract congestion [Recovering/Resolving]
  - Swelling face [Recovering/Resolving]
  - Decreased appetite [Not Recovered/Not Resolved]
  - Oral pain [Recovering/Resolving]
  - Adrenal insufficiency [Unknown]
  - Pain [Not Recovered/Not Resolved]
  - Oral pustule [Not Recovered/Not Resolved]
  - Sinusitis [Recovered/Resolved]
  - Eye disorder [Not Recovered/Not Resolved]
  - Oropharyngeal pain [Recovering/Resolving]
  - Irritability [Not Recovered/Not Resolved]
  - Bone pain [Not Recovered/Not Resolved]
  - Nasal congestion [Unknown]
  - Upper-airway cough syndrome [Unknown]
  - Adrenocortical insufficiency acute [Unknown]
  - Diarrhoea [Not Recovered/Not Resolved]

NARRATIVE: CASE EVENT DATE: 2012
